FAERS Safety Report 7742360-X (Version None)
Quarter: 2011Q3

REPORT INFORMATION
  Report Type: 
  Country: None (occurrence: None)
  Receive Date: 20110912
  Receipt Date: 20100406
  Transmission Date: 20111222
  Serious: No
  Sender: FDA-Public Use
  Company Number: US-BAYER-201019683NA

PATIENT
  Age: 26 Year
  Sex: Female

DRUGS (1)
  1. MIRENA [Suspect]
     Indication: CONTRACEPTION
     Dosage: DAILY DOSE 20 ?G
     Route: 015
     Dates: start: 20091016, end: 20100331

REACTIONS (4)
  - BREAST ENLARGEMENT [None]
  - IRRITABILITY [None]
  - ABDOMINAL DISTENSION [None]
  - WEIGHT INCREASED [None]
